FAERS Safety Report 8881766 (Version 2)
Quarter: 2013Q1

REPORT INFORMATION
  Report Type: Spontaneous
  Country: US (occurrence: US)
  Receive Date: 20121102
  Receipt Date: 20130208
  Transmission Date: 20140127
  Serious: Yes (Other)
  Sender: FDA-Public Use
  Company Number: US-ELI_LILLY_AND_COMPANY-US201210007578

PATIENT
  Age: 12 Year
  Sex: Female

DRUGS (1)
  1. STRATTERA [Suspect]
     Indication: ATTENTION DEFICIT/HYPERACTIVITY DISORDER
     Dosage: 40 MG, QD
     Dates: start: 201103

REACTIONS (4)
  - Self-injurious ideation [Unknown]
  - Abdominal pain upper [Unknown]
  - Drug withdrawal syndrome [Unknown]
  - Depressed mood [Unknown]
